FAERS Safety Report 13562599 (Version 5)
Quarter: 2018Q2

REPORT INFORMATION
  Report Type: Spontaneous
  Country: US (occurrence: US)
  Receive Date: 20170519
  Receipt Date: 20180423
  Transmission Date: 20180711
  Serious: No
  Sender: FDA-Public Use
  Company Number: PHEH2017US014989

PATIENT
  Age: 66 Year
  Sex: Male

DRUGS (2)
  1. AFINITOR [Suspect]
     Active Substance: EVEROLIMUS
     Indication: RENAL NEOPLASM
     Dosage: 5 MG, QD
     Route: 048
     Dates: start: 20170118
  2. LENVATINIB [Suspect]
     Active Substance: LENVATINIB
     Indication: RENAL NEOPLASM
     Dosage: 10 MG, QOD
     Route: 048
     Dates: start: 20170117

REACTIONS (5)
  - Rash [Recovered/Resolved]
  - Abdominal pain [Recovered/Resolved]
  - Dysgeusia [Unknown]
  - Dysphonia [Unknown]
  - Increased appetite [Unknown]

NARRATIVE: CASE EVENT DATE: 20180319
